FAERS Safety Report 15376888 (Version 1)
Quarter: 2018Q3

REPORT INFORMATION
  Report Type: Spontaneous
  Country: DE (occurrence: DE)
  Receive Date: 20180913
  Receipt Date: 20180913
  Transmission Date: 20181010
  Serious: Yes (Hospitalization)
  Sender: FDA-Public Use
  Company Number: DE-BIOGEN-2018BI00631109

PATIENT
  Age: 35 Year
  Sex: Female

DRUGS (1)
  1. TECFIDERA [Suspect]
     Active Substance: DIMETHYL FUMARATE
     Indication: MULTIPLE SCLEROSIS
     Dosage: MAINTENANCE DOSE
     Route: 048
     Dates: start: 201701

REACTIONS (5)
  - Stress [Unknown]
  - Incontinence [Not Recovered/Not Resolved]
  - Libido decreased [Not Recovered/Not Resolved]
  - Fallopian tube disorder [Recovered/Resolved]
  - Uterine prolapse [Recovered/Resolved]

NARRATIVE: CASE EVENT DATE: 2017
